FAERS Safety Report 13094534 (Version 4)
Quarter: 2017Q1

REPORT INFORMATION
  Report Type: Report from Study
  Country: CA (occurrence: CA)
  Receive Date: 20170106
  Receipt Date: 20170210
  Transmission Date: 20170428
  Serious: Yes (Other)
  Sender: FDA-Public Use
  Company Number: CA-GILEAD-2017-0251796

PATIENT
  Age: 51 Year
  Sex: Male

DRUGS (8)
  1. TRUVADA [Suspect]
     Active Substance: EMTRICITABINE\TENOFOVIR DISOPROXIL FUMARATE
     Indication: HIV TEST POSITIVE
     Dosage: 1 DF, QD
     Route: 048
     Dates: start: 20080916, end: 20170119
  2. BETNOVATE [Concomitant]
     Active Substance: BETAMETHASONE
  3. DICLOFENAC [Concomitant]
     Active Substance: DICLOFENAC
  4. COVERSYL                           /00790702/ [Concomitant]
     Active Substance: PERINDOPRIL
  5. VENTOLIN [Concomitant]
     Active Substance: ALBUTEROL SULFATE
  6. COLCHICINE. [Concomitant]
     Active Substance: COLCHICINE
  7. APO INDOMETHACIN [Concomitant]
  8. ISENTRESS [Concomitant]
     Active Substance: RALTEGRAVIR POTASSIUM

REACTIONS (5)
  - Microalbuminuria [Unknown]
  - Nephropathy toxic [Unknown]
  - Osteoporosis [Not Recovered/Not Resolved]
  - Hypophosphataemia [Unknown]
  - Blood creatinine increased [Unknown]

NARRATIVE: CASE EVENT DATE: 2016
